FAERS Safety Report 5815578-0 (Version None)
Quarter: 2008Q3

REPORT INFORMATION
  Report Type: 
  Country: None (occurrence: None)
  Receive Date: 20080718
  Receipt Date: 20080710
  Transmission Date: 20090109
  Serious: Yes (Other)
  Sender: FDA-Public Use
  Company Number: DE-PFIZER INC-2008059370

PATIENT
  Age: 18 Year
  Sex: Male

DRUGS (3)
  1. CABASERIL [Suspect]
     Indication: PROLACTINOMA
     Dosage: DAILY DOSE:6MG-TEXT:DAILY
     Route: 048
  2. LEVOTHYROXINE SODIUM [Concomitant]
  3. TESTOSTERONE [Concomitant]

REACTIONS (1)
  - PATHOLOGICAL GAMBLING [None]
